FAERS Safety Report 23554619 (Version 1)
Quarter: 2024Q1

REPORT INFORMATION
  Report Type: Report from Study
  Country: KR (occurrence: None)
  Receive Date: 20240222
  Receipt Date: 20240222
  Transmission Date: 20240410
  Serious: Yes (Hospitalization)
  Sender: FDA-Public Use
  Company Number: 2024A039375

PATIENT
  Age: 62 Year
  Sex: Male
  Weight: 78 kg

DRUGS (29)
  1. NEXIUM I.V. [Suspect]
     Active Substance: ESOMEPRAZOLE SODIUM
     Indication: Prophylaxis against gastrointestinal ulcer
     Dosage: 23-JAN-2023
     Route: 042
  2. BEVACIZUMAB [Suspect]
     Active Substance: BEVACIZUMAB
     Indication: Colorectal cancer metastatic
     Dosage: 399 MILLIGRAM
     Route: 042
     Dates: start: 20221101, end: 20230103
  3. BEVACIZUMAB [Suspect]
     Active Substance: BEVACIZUMAB
     Indication: Colorectal cancer metastatic
     Dosage: 370 MILLIGRAM
     Route: 042
     Dates: start: 20230117, end: 20230117
  4. UNSPECIFIED INGREDIENT [Suspect]
     Active Substance: UNSPECIFIED INGREDIENT
     Indication: Colorectal cancer
     Dosage: 3 DOSAGE FORM
     Dates: start: 20221115
  5. UNSPECIFIED INGREDIENT [Suspect]
     Active Substance: UNSPECIFIED INGREDIENT
     Indication: Prophylaxis
     Dosage: 1 DOSAGE FORM
     Dates: start: 20220614
  6. OXYCODONE HYDROCHLORIDE [Suspect]
     Active Substance: OXYCODONE HYDROCHLORIDE
     Indication: Prophylaxis
     Dosage: 5 MILLIGRAM
     Dates: start: 20221004, end: 20221128
  7. UNSPECIFIED INGREDIENT [Suspect]
     Active Substance: UNSPECIFIED INGREDIENT
     Indication: Allergy prophylaxis
     Dosage: 1 DOSAGE FORM
     Dates: start: 20220809, end: 20221128
  8. PREGABALIN [Suspect]
     Active Substance: PREGABALIN
     Indication: Prophylaxis
     Dosage: 1 DOSAGE FORM
     Dates: start: 20220809, end: 20221201
  9. UNSPECIFIED INGREDIENT [Suspect]
     Active Substance: UNSPECIFIED INGREDIENT
     Indication: Prophylaxis
     Dosage: 10 MILLIGRAM
     Dates: start: 20221004
  10. GABAPENTIN [Suspect]
     Active Substance: GABAPENTIN
     Indication: Prophylaxis
     Dosage: 1 DOSAGE FORM
     Dates: start: 20221202
  11. UNSPECIFIED INGREDIENT [Suspect]
     Active Substance: UNSPECIFIED INGREDIENT
     Indication: Aspartate aminotransferase increased
     Dosage: 1 DOSAGE FORM
     Dates: start: 20221202, end: 20230118
  12. UNSPECIFIED INGREDIENT [Suspect]
     Active Substance: UNSPECIFIED INGREDIENT
     Indication: Blood alkaline phosphatase increased
     Dosage: 1 DOSAGE FORM
     Dates: start: 20221202, end: 20230118
  13. URSODIOL [Suspect]
     Active Substance: URSODIOL
     Indication: Aspartate aminotransferase increased
     Dosage: 1 DOSAGE FORM
     Dates: start: 20221202, end: 20230118
  14. URSODIOL [Suspect]
     Active Substance: URSODIOL
     Indication: Blood alkaline phosphatase increased
     Dosage: 1 DOSAGE FORM
     Dates: start: 20221202, end: 20230118
  15. MEGESTROL ACETATE [Suspect]
     Active Substance: MEGESTROL ACETATE
     Indication: Prophylaxis
     Dates: start: 20221216
  16. ACETAMINOPHEN [Suspect]
     Active Substance: ACETAMINOPHEN
     Indication: Pain prophylaxis
     Dosage: 1 DOSAGE FORM
     Dates: start: 20230117, end: 20230209
  17. ACETAMINOPHEN [Suspect]
     Active Substance: ACETAMINOPHEN
     Indication: Prophylaxis
     Dosage: 1 DOSAGE FORM
     Dates: start: 20230117, end: 20230209
  18. PIPERACILLIN SODIUM\TAZOBACTAM SODIUM [Suspect]
     Active Substance: PIPERACILLIN SODIUM\TAZOBACTAM SODIUM
     Indication: Inflammation
     Dates: start: 20230123, end: 20230127
  19. ALBUMIN (HUMAN) [Suspect]
     Active Substance: ALBUMIN HUMAN
     Indication: Prophylaxis
     Dates: start: 20230126, end: 20230209
  20. LEVOFLOXACIN [Suspect]
     Active Substance: LEVOFLOXACIN
     Indication: Inflammation
     Dates: start: 20230123, end: 20230127
  21. SOYBEAN OIL [Suspect]
     Active Substance: SOYBEAN OIL
     Indication: Prophylaxis
     Dates: start: 20230123, end: 20230125
  22. CALCIUM GLUCONATE [Suspect]
     Active Substance: CALCIUM GLUCONATE
     Indication: Prophylaxis
     Dates: start: 20230125, end: 20230209
  23. ALPRAZOLAM [Suspect]
     Active Substance: ALPRAZOLAM
     Indication: Prophylaxis
     Dosage: 1 DOSAGE FORM
     Dates: start: 20230125
  24. FUROSEMIDE [Suspect]
     Active Substance: FUROSEMIDE
     Indication: Prophylaxis
     Dates: start: 20230126, end: 20230126
  25. PROPACETAMOL HYDROCHLORIDE [Suspect]
     Active Substance: PROPACETAMOL HYDROCHLORIDE
     Indication: Pyrexia
     Dates: start: 20230128, end: 20230208
  26. SODIUM CARBONATE [Suspect]
     Active Substance: SODIUM CARBONATE
     Indication: Inflammation
     Dates: start: 20230128, end: 20230209
  27. UNSPECIFIED INGREDIENT [Suspect]
     Active Substance: UNSPECIFIED INGREDIENT
     Indication: Prophylaxis
     Dates: start: 20230130, end: 20230209
  28. CODEINE PHOSPHATE [Suspect]
     Active Substance: CODEINE PHOSPHATE
     Indication: Prophylaxis
     Dosage: 1 DOSAGE FORM
     Dates: start: 20230202
  29. ARGININE\HISTIDINE\ISOLEUCINE\LEUCINE\LYSINE ACETATE\METHIONINE\PHENYL [Suspect]
     Active Substance: ARGININE\HISTIDINE\ISOLEUCINE\LEUCINE\LYSINE ACETATE\METHIONINE\PHENYLALANINE\THREONINE\TRYPTOPHAN\V
     Indication: Prophylaxis
     Dates: start: 20230124, end: 20230126

REACTIONS (1)
  - Psoas abscess [Recovered/Resolved]

NARRATIVE: CASE EVENT DATE: 20230122
